FAERS Safety Report 5271037-8 (Version None)
Quarter: 2007Q1

REPORT INFORMATION
  Report Type: 
  Country: None (occurrence: None)
  Receive Date: 20070321
  Receipt Date: 20070307
  Transmission Date: 20070707
  Serious: Yes (Other)
  Sender: FDA-Public Use
  Company Number: US-AMGEN-KDL194339

PATIENT
  Sex: Male

DRUGS (2)
  1. ENBREL [Suspect]
     Indication: RHEUMATOID ARTHRITIS
     Route: 058
     Dates: start: 20030201
  2. METHOTREXATE [Concomitant]
     Dates: start: 20060501

REACTIONS (9)
  - ABDOMINAL PAIN [None]
  - ANOREXIA [None]
  - FATIGUE [None]
  - HAEMATOCHEZIA [None]
  - HYPOAESTHESIA [None]
  - MIXED CONNECTIVE TISSUE DISEASE [None]
  - NEOPLASM PROSTATE [None]
  - TONGUE COATED [None]
  - WEIGHT DECREASED [None]
